FAERS Safety Report 14214014 (Version 2)
Quarter: 2018Q2

REPORT INFORMATION
  Report Type: Spontaneous
  Country: US (occurrence: US)
  Receive Date: 20171122
  Receipt Date: 20180607
  Transmission Date: 20180711
  Serious: Yes (Death)
  Sender: FDA-Public Use
  Company Number: US-ROCHE-2029850

PATIENT
  Age: 86 Year
  Sex: Male

DRUGS (1)
  1. ESBRIET [Suspect]
     Active Substance: PIRFENIDONE
     Indication: IDIOPATHIC PULMONARY FIBROSIS
     Dosage: ONGOING AT THE TIME OF DEATH: UNKNOWN
     Route: 048
     Dates: start: 20160425

REACTIONS (1)
  - Death [Fatal]

NARRATIVE: CASE EVENT DATE: 20171111
